FAERS Safety Report 5190432-9 (Version None)
Quarter: 2006Q4

REPORT INFORMATION
  Report Type: 
  Country: None (occurrence: None)
  Receive Date: 20061222
  Receipt Date: 20061214
  Transmission Date: 20070319
  Serious: Yes (Hospitalization)
  Sender: FDA-Public Use
  Company Number: DE-ELI_LILLY_AND_COMPANY-DE200612002888

PATIENT
  Age: 78 Year
  Sex: Female
  Weight: 80 kg

DRUGS (2)
  1. YENTREVE [Suspect]
     Indication: STRESS URINARY INCONTINENCE
     Dosage: 20 MG, DAILY (1/D)
     Route: 048
     Dates: start: 20050601
  2. ESTROGENS [Concomitant]
     Indication: VAGINAL INFECTION
     Dosage: 0.5 MG, UNK
     Dates: start: 20050601

REACTIONS (2)
  - FALL [None]
  - HIP SURGERY [None]
